FAERS Safety Report 5724255-6 (Version None)
Quarter: 2008Q2

REPORT INFORMATION
  Report Type: 
  Country: None (occurrence: None)
  Receive Date: 20080430
  Receipt Date: 20080422
  Transmission Date: 20081010
  Serious: Yes (Hospitalization)
  Sender: FDA-Public Use
  Company Number: US-PFIZER INC-2006031849

PATIENT
  Sex: Female
  Weight: 50 kg

DRUGS (3)
  1. SOMAVERT [Suspect]
     Indication: ACROMEGALY
     Route: 058
     Dates: start: 20050101, end: 20060101
  2. SOMAVERT [Suspect]
     Route: 058
  3. DESMOPRESSIN ACETATE [Concomitant]
     Route: 048

REACTIONS (8)
  - ASTHENIA [None]
  - EAR PAIN [None]
  - HERPES ZOSTER [None]
  - INJECTION SITE SWELLING [None]
  - NASAL CONGESTION [None]
  - NAUSEA [None]
  - SINUSITIS [None]
  - WEIGHT INCREASED [None]
